FAERS Safety Report 12833719 (Version 1)
Quarter: 2016Q4

REPORT INFORMATION
  Report Type: Spontaneous
  Country: MX (occurrence: MX)
  Receive Date: 20161010
  Receipt Date: 20161010
  Transmission Date: 20170207
  Serious: Yes (Other)
  Sender: FDA-Public Use
  Company Number: MX-AMGEN-MEXSP2016135237

PATIENT
  Age: 64 Year
  Sex: Female

DRUGS (10)
  1. NPLATE [Suspect]
     Active Substance: ROMIPLOSTIM
     Dosage: UNK, Q2WK
     Route: 065
  2. NPLATE [Suspect]
     Active Substance: ROMIPLOSTIM
     Indication: EVANS SYNDROME
     Dosage: EVERY 5 WEEKS
     Route: 065
     Dates: start: 2013
  3. SUCRALFATE. [Concomitant]
     Active Substance: SUCRALFATE
     Dosage: UNK
  4. MICARDIS [Concomitant]
     Active Substance: TELMISARTAN
     Dosage: UNK
  5. OMEPRAZOL [Concomitant]
     Active Substance: OMEPRAZOLE
     Dosage: UNK
  6. NPLATE [Suspect]
     Active Substance: ROMIPLOSTIM
     Dosage: UNK, Q3WK
     Route: 065
  7. METOTREXATE [Concomitant]
     Active Substance: METHOTREXATE SODIUM
     Dosage: 2.5 MG, UNK
  8. FOLIC ACID. [Concomitant]
     Active Substance: FOLIC ACID
     Dosage: 6 DF, QWK
     Dates: start: 201601
  9. NPLATE [Suspect]
     Active Substance: ROMIPLOSTIM
     Dosage: UNK, Q4WK
     Route: 065
  10. PENTOXIFILINA [Concomitant]
     Active Substance: PENTOXIFYLLINE
     Dosage: UNK

REACTIONS (5)
  - Platelet count decreased [Unknown]
  - Infection [Recovered/Resolved]
  - Gastric haemorrhage [Unknown]
  - Condition aggravated [Not Recovered/Not Resolved]
  - Diarrhoea [Recovered/Resolved]

NARRATIVE: CASE EVENT DATE: 2013
